FAERS Safety Report 4917545-8 (Version None)
Quarter: 2006Q1

REPORT INFORMATION
  Report Type: 
  Country: None (occurrence: None)
  Receive Date: 20060221
  Receipt Date: 20050923
  Transmission Date: 20060701
  Serious: Yes (Hospitalization, Disabling)
  Sender: FDA-Public Use
  Company Number: US-MERCK-0509USA03605

PATIENT
  Age: 49 Year
  Sex: Male
  Weight: 93 kg

DRUGS (14)
  1. VIOXX [Suspect]
     Indication: BACK INJURY
     Route: 048
     Dates: start: 20020401
  2. VIOXX [Suspect]
     Route: 048
     Dates: start: 20020613
  3. VIOXX [Suspect]
     Route: 048
     Dates: start: 20020712
  4. VIOXX [Suspect]
     Route: 048
     Dates: end: 20040901
  5. VALIUM [Concomitant]
     Indication: PAIN
     Route: 065
     Dates: start: 20031001, end: 20040601
  6. VALIUM [Concomitant]
     Indication: BACK INJURY
     Route: 065
     Dates: start: 20031001, end: 20040601
  7. NORCO [Concomitant]
     Indication: PAIN
     Route: 065
     Dates: start: 20031001, end: 20040601
  8. NORCO [Concomitant]
     Indication: BACK INJURY
     Route: 065
     Dates: start: 20031001, end: 20040601
  9. WELLBUTRIN [Concomitant]
     Indication: DEPRESSION
     Route: 065
  10. AMBIEN [Concomitant]
     Indication: INSOMNIA
     Route: 065
  11. SOMA [Concomitant]
     Indication: PAIN
     Route: 065
     Dates: start: 20031001, end: 20040601
  12. SOMA [Concomitant]
     Indication: BACK INJURY
     Route: 065
     Dates: start: 20031001, end: 20040601
  13. VICODIN [Concomitant]
     Indication: PAIN
     Route: 065
     Dates: start: 20031001, end: 20040601
  14. VICODIN [Concomitant]
     Indication: BACK INJURY
     Route: 065
     Dates: start: 20031001, end: 20040601

REACTIONS (17)
  - ACCIDENT AT WORK [None]
  - ADJUSTMENT DISORDER [None]
  - ANXIETY [None]
  - BACK INJURY [None]
  - BACK PAIN [None]
  - BREAST DISCHARGE [None]
  - CARDIOMEGALY [None]
  - CELLULITIS [None]
  - CORONARY ARTERY STENOSIS [None]
  - DEPRESSED MOOD [None]
  - DEPRESSION [None]
  - LIMB INJURY [None]
  - MUSCLE SPASMS [None]
  - MYOCARDIAL INFARCTION [None]
  - PAIN [None]
  - PAIN IN EXTREMITY [None]
  - PULMONARY OEDEMA [None]
